FAERS Safety Report 5477664-7 (Version None)
Quarter: 2007Q4

REPORT INFORMATION
  Report Type: 
  Country: None (occurrence: None)
  Receive Date: 20071002
  Receipt Date: 20070918
  Transmission Date: 20080405
  Serious: Yes (Other)
  Sender: FDA-Public Use
  Company Number: 161947USA

PATIENT
  Sex: Male

DRUGS (1)
  1. ORAP [Suspect]

REACTIONS (1)
  - WEIGHT INCREASED [None]
